FAERS Safety Report 5837425-3 (Version None)
Quarter: 2008Q3

REPORT INFORMATION
  Report Type: 
  Country: None (occurrence: None)
  Receive Date: 20080807
  Receipt Date: 20080721
  Transmission Date: 20090109
  Serious: No
  Sender: FDA-Public Use
  Company Number: US-BOEHRINGER INGELHEIM GMBH, GERMANY-2008-BP-11368BP

PATIENT
  Age: 58 Year
  Sex: Female

DRUGS (6)
  1. MIRAPEX [Suspect]
     Indication: RESTLESS LEGS SYNDROME
     Route: 048
     Dates: start: 20080714
  2. JANUMET [Concomitant]
     Indication: DIABETES MELLITUS
     Route: 048
  3. DIOVAN [Concomitant]
     Indication: HYPERTENSION
     Route: 048
  4. GLYBURIDE [Concomitant]
     Indication: DIABETES MELLITUS
     Route: 048
  5. VALIUM [Concomitant]
     Indication: SLEEP DISORDER
     Route: 048
  6. VALIUM [Concomitant]
     Indication: ANXIETY

REACTIONS (1)
  - BLOOD GLUCOSE INCREASED [None]
